FAERS Safety Report 24981739 (Version 2)
Quarter: 2025Q1

REPORT INFORMATION
  Report Type: Spontaneous
  Country: DE (occurrence: DE)
  Receive Date: 20250218
  Receipt Date: 20250228
  Transmission Date: 20250409
  Serious: Yes (Hospitalization)
  Sender: TEVA
  Company Number: DE-TEVA-VS-3298796

PATIENT
  Age: 77 Year
  Sex: Female

DRUGS (1)
  1. TORSEMIDE [Suspect]
     Active Substance: TORSEMIDE
     Indication: Hypertension
     Route: 065

REACTIONS (2)
  - Hyponatraemia [Recovered/Resolved]
  - Hypovolaemia [Recovered/Resolved]
